FAERS Safety Report 12765101 (Version 4)
Quarter: 2017Q4

REPORT INFORMATION
  Report Type: Spontaneous
  Country: DE (occurrence: DE)
  Receive Date: 20160921
  Receipt Date: 20171227
  Transmission Date: 20180320
  Serious: Yes (Hospitalization, Other)
  Sender: FDA-Public Use
  Company Number: DE-AMGEN-DEUSP2016127656

PATIENT
  Sex: Male

DRUGS (30)
  1. PEGFILGRASTIM [Suspect]
     Active Substance: PEGFILGRASTIM
     Indication: B-CELL LYMPHOMA
     Dosage: 6 MG, ON DAY 4 OF CYCLE, ONCE
     Route: 058
     Dates: start: 20160819
  2. DOXORUBICIN [Suspect]
     Active Substance: DOXORUBICIN
     Dosage: UNK, QD (1 IN 1 D)
     Route: 042
     Dates: start: 20160629
  3. CYCLOPHOSPHAMIDE. [Suspect]
     Active Substance: CYCLOPHOSPHAMIDE
     Dosage: UNK, QD (1 IN 1 D) LAST CYCLE
     Route: 042
     Dates: start: 20160816
  4. VINCRISTINE [Suspect]
     Active Substance: VINCRISTINE
     Dosage: UNK
     Route: 042
     Dates: start: 20160802
  5. DOXORUBICIN [Suspect]
     Active Substance: DOXORUBICIN
     Indication: B-CELL LYMPHOMA
     Dosage: 90.9 MG, QD (1 IN 1 D)
     Route: 042
     Dates: start: 20160527
  6. VINCRISTINE [Suspect]
     Active Substance: VINCRISTINE
     Dosage: UNK
     Route: 042
     Dates: start: 20160629
  7. PREDNISONE. [Suspect]
     Active Substance: PREDNISONE
     Dosage: UNK, LAST CYCLE
     Route: 048
     Dates: start: 20160816
  8. LEVOFLOXACIN. [Concomitant]
     Active Substance: LEVOFLOXACIN
     Indication: APLASIA
     Dosage: UNK, QD
     Dates: start: 20160603, end: 20160603
  9. TAZOBACTAM [Concomitant]
     Active Substance: TAZOBACTAM
     Indication: PYREXIA
     Dosage: 4.5 G, TID
     Route: 042
     Dates: start: 20160603
  10. METAMIZOLE SODIUM [Concomitant]
     Active Substance: METAMIZOLE SODIUM
     Dosage: 30 GTT, UNK
  11. METOCLOPRAMIDE. [Concomitant]
     Active Substance: METOCLOPRAMIDE
     Dosage: UNK
  12. DOXORUBICIN [Suspect]
     Active Substance: DOXORUBICIN
     Dosage: UNK, QD (1 IN 1 D)
     Route: 042
     Dates: start: 20160713
  13. DOXORUBICIN [Suspect]
     Active Substance: DOXORUBICIN
     Dosage: UNK, QD (1 IN 1 D)
     Route: 042
     Dates: start: 20160802
  14. VINCRISTINE [Suspect]
     Active Substance: VINCRISTINE
     Dosage: UNK
     Route: 042
     Dates: start: 20160713
  15. ONDANSETRON [Concomitant]
     Active Substance: ONDANSETRON
     Dosage: UNK UNK, AS NEEDED
  16. VINCRISTINE [Suspect]
     Active Substance: VINCRISTINE
     Dosage: UNK
     Route: 042
     Dates: start: 20160816
  17. ACICLOVIR [Concomitant]
     Active Substance: ACYCLOVIR
     Dosage: 200 MG, TID (3 IN 1 D)
  18. RITUXIMAB. [Suspect]
     Active Substance: RITUXIMAB
     Indication: B-CELL LYMPHOMA
     Dosage: 681.7 MG, (4X 8 DAYS)
     Route: 042
     Dates: start: 20160523
  19. CYCLOPHOSPHAMIDE. [Suspect]
     Active Substance: CYCLOPHOSPHAMIDE
     Dosage: UNK, QD (1 IN 1 D)
     Route: 042
     Dates: start: 20160802
  20. DOXORUBICIN [Suspect]
     Active Substance: DOXORUBICIN
     Dosage: UNK, QD (1 IN 1 D)
     Route: 042
     Dates: start: 20160816
  21. CYCLOPHOSPHAMIDE. [Suspect]
     Active Substance: CYCLOPHOSPHAMIDE
     Dosage: UNK, QD (1 IN 1 D)
     Route: 042
     Dates: start: 20160629
  22. LEVOTHYROXINE SODIUM. [Concomitant]
     Active Substance: LEVOTHYROXINE SODIUM
     Indication: HYPOTHYROIDISM
     Dosage: 50 MUG, QD (1 IN 1 D)
     Route: 048
  23. ALLOPURINOL. [Concomitant]
     Active Substance: ALLOPURINOL
     Dosage: 150 MG, QD (1 IN 1 D)
  24. COLECALCIFEROL [Concomitant]
     Active Substance: CHOLECALCIFEROL
     Dosage: 1 WEEKLY, 2 CAPSULE (20000 UNIT NOT REPORTED)
  25. CIPROFLOXACIN. [Concomitant]
     Active Substance: CIPROFLOXACIN
     Dosage: UNK
     Dates: start: 20160824, end: 20160829
  26. CYCLOPHOSPHAMIDE. [Suspect]
     Active Substance: CYCLOPHOSPHAMIDE
     Indication: B-CELL LYMPHOMA
     Dosage: 1363.5 MG, QD (1 IN 1 D)
     Route: 042
     Dates: start: 20160527
  27. CYCLOPHOSPHAMIDE. [Suspect]
     Active Substance: CYCLOPHOSPHAMIDE
     Dosage: UNK, QD (1 IN 1 D)
     Route: 042
     Dates: start: 20160713
  28. VINCRISTINE [Suspect]
     Active Substance: VINCRISTINE
     Indication: B-CELL LYMPHOMA
     Dosage: 2 MG, UNK
     Route: 042
     Dates: start: 20160527
  29. PREDNISONE. [Suspect]
     Active Substance: PREDNISONE
     Indication: B-CELL LYMPHOMA
     Dosage: 100 MG, (DAY 1 TO 5 CYCLE)
     Route: 048
     Dates: start: 20160519
  30. SULFAMETHOXAZOLE W/TRIMETHOPRIM [Concomitant]
     Active Substance: SULFAMETHOXAZOLE\TRIMETHOPRIM
     Dosage: ON MONDAY/WEDNESDAY/FRIDAY

REACTIONS (2)
  - Febrile neutropenia [Recovered/Resolved]
  - Febrile neutropenia [Recovered/Resolved]

NARRATIVE: CASE EVENT DATE: 20160606
